FAERS Safety Report 12914130 (Version 1)
Quarter: 2016Q4

REPORT INFORMATION
  Report Type: Spontaneous
  Country: CH (occurrence: CH)
  Receive Date: 20161105
  Receipt Date: 20161105
  Transmission Date: 20170207
  Serious: Yes (Death, Other)
  Sender: FDA-Public Use
  Company Number: CH-ASTRAZENECA-2016SF13183

PATIENT
  Age: 33576 Day
  Sex: Female

DRUGS (13)
  1. CALCIMAGON D3 [Concomitant]
     Active Substance: CALCIUM\CHOLECALCIFEROL
     Route: 048
     Dates: end: 20160610
  2. EUTHYROX [Interacting]
     Active Substance: LEVOTHYROXINE SODIUM
     Indication: HYPOTHYROIDISM
     Route: 048
     Dates: start: 20160602
  3. DAFALGAN [Concomitant]
     Active Substance: ACETAMINOPHEN
     Route: 048
     Dates: start: 201606
  4. EUTHYROX [Interacting]
     Active Substance: LEVOTHYROXINE SODIUM
     Indication: HYPOTHYROIDISM
     Dosage: NOVOTHYRAL (LEVOTHYROXINE) 100 UG/DAY
     Route: 048
  5. RIFAMPICIN [Interacting]
     Active Substance: RIFAMPIN
     Indication: STAPHYLOCOCCAL OSTEOMYELITIS
     Route: 048
     Dates: start: 20160605, end: 20160711
  6. JANUVIA [Concomitant]
     Active Substance: SITAGLIPTIN PHOSPHATE
     Route: 048
     Dates: end: 201606
  7. TRANSTEC [Concomitant]
     Active Substance: BUPRENORPHINE
     Route: 062
  8. SOTALEX [Concomitant]
     Active Substance: SOTALOL
     Route: 048
  9. NEXIUM [Suspect]
     Active Substance: ESOMEPRAZOLE MAGNESIUM
     Route: 048
     Dates: start: 20160613
  10. CIPROFLOXACIN SPIRIG HC [Interacting]
     Active Substance: CIPROFLOXACIN HYDROCHLORIDE
     Indication: STAPHYLOCOCCAL OSTEOMYELITIS
     Route: 065
     Dates: start: 20160614, end: 20160711
  11. EUTHYROX [Interacting]
     Active Substance: LEVOTHYROXINE SODIUM
     Indication: HYPOTHYROIDISM
     Route: 048
     Dates: start: 20160621
  12. CALCIMAGON D3 [Concomitant]
     Active Substance: CALCIUM\CHOLECALCIFEROL
     Route: 048
     Dates: start: 20160620
  13. CLEXANE [Concomitant]
     Active Substance: ENOXAPARIN SODIUM
     Route: 058
     Dates: start: 201606

REACTIONS (3)
  - Aortic dissection [Fatal]
  - Drug interaction [Unknown]
  - Hypothyroidism [Recovered/Resolved]

NARRATIVE: CASE EVENT DATE: 20160621
